FAERS Safety Report 8965050 (Version 1)
Quarter: 2012Q4

REPORT INFORMATION
  Report Type: 
  Country: DE (occurrence: DE)
  Receive Date: 20121214
  Receipt Date: 20121214
  Transmission Date: 20130627
  Serious: Yes (Hospitalization)
  Sender: FDA-Public Use
  Company Number: PHHY2012DE090245

PATIENT
  Sex: Female
  Weight: 60 kg

DRUGS (3)
  1. GILENYA [Suspect]
     Indication: MULTIPLE SCLEROSIS RELAPSE
     Dosage: 0.5 mg
     Route: 048
     Dates: start: 20120216, end: 20120218
  2. GILENYA [Suspect]
     Dosage: 0.5 mg
     Route: 048
     Dates: start: 201204, end: 20121009
  3. GILENYA [Suspect]
     Dosage: 0.5 mg
     Route: 048
     Dates: start: 2012

REACTIONS (7)
  - Multiple sclerosis relapse [Recovering/Resolving]
  - Dysarthria [Recovering/Resolving]
  - Aphasia [Recovering/Resolving]
  - Central nervous system lesion [Unknown]
  - Hemiparesis [Recovering/Resolving]
  - Condition aggravated [Unknown]
  - Diplopia [Recovering/Resolving]
